FAERS Safety Report 10264186 (Version 1)
Quarter: 2014Q2

REPORT INFORMATION
  Report Type: Spontaneous
  Country: US (occurrence: None)
  Receive Date: 20140623
  Receipt Date: 20140623
  Transmission Date: 20141212
  Serious: Yes (Disabling, Other)
  Sender: FDA-Public Use
  Company Number: None

PATIENT
  Age: 55 Year
  Sex: Female

DRUGS (1)
  1. PREMARIN VAG CREAM [Suspect]
     Indication: MENOPAUSE
     Dosage: 1 GRAM TWICE A WEEK, AT BEDTIME, VAGINAL
     Route: 067
     Dates: start: 20130603, end: 20140601

REACTIONS (2)
  - Urinary tract infection [None]
  - Device related infection [None]
